FAERS Safety Report 15330152 (Version 1)
Quarter: 2018Q3

REPORT INFORMATION
  Report Type: Spontaneous
  Country: US (occurrence: US)
  Receive Date: 20180829
  Receipt Date: 20180829
  Transmission Date: 20181010
  Serious: Yes (Hospitalization)
  Sender: FDA-Public Use
  Company Number: US-JNJFOC-20180837630

PATIENT
  Age: 80 Year
  Sex: Male
  Weight: 104 kg

DRUGS (1)
  1. INVOKANA [Suspect]
     Active Substance: CANAGLIFLOZIN
     Indication: TYPE 2 DIABETES MELLITUS
     Route: 048
     Dates: start: 20170208

REACTIONS (6)
  - Sepsis [Recovered/Resolved]
  - Impaired healing [Unknown]
  - Diabetic foot infection [Recovering/Resolving]
  - Neuropathic arthropathy [Recovering/Resolving]
  - Osteopenia [Unknown]
  - Amputation [Unknown]

NARRATIVE: CASE EVENT DATE: 201703
